FAERS Safety Report 5463034-4 (Version None)
Quarter: 2007Q3

REPORT INFORMATION
  Report Type: 
  Country: None (occurrence: None)
  Receive Date: 20070918
  Receipt Date: 20070918
  Transmission Date: 20080115
  Serious: Yes (Other)
  Sender: FDA-Public Use
  Company Number: None

PATIENT
  Age: 5 Year
  Sex: Female
  Weight: 64 kg

DRUGS (1)
  1. PREVACID [Suspect]
     Indication: VOMITING
     Dosage: 15 MG DAILY PO
     Route: 048
     Dates: start: 20070816, end: 20070821

REACTIONS (3)
  - ACCOMMODATION DISORDER [None]
  - HALLUCINATIONS, MIXED [None]
  - VISUAL DISTURBANCE [None]
